FAERS Safety Report 23232427 (Version 1)
Quarter: 2023Q4

REPORT INFORMATION
  Report Type: Other
  Country: DE (occurrence: DE)
  Receive Date: 20231128
  Receipt Date: 20231128
  Transmission Date: 20240110
  Serious: Yes (Other)
  Sender: FDA-Public Use
  Company Number: DE-MACLEODS PHARMACEUTICALS US LTD-MAC2023044401

PATIENT

DRUGS (3)
  1. ARIPIPRAZOLE [Suspect]
     Active Substance: ARIPIPRAZOLE
     Indication: Product used for unknown indication
     Dosage: 3 MILLIGRAM, QD, 1 {TRIMESTER} AND 0. - 38.3. GESTATIONAL WEEK
     Route: 064
     Dates: start: 20220522, end: 20230215
  2. VENLAFAXINE [Suspect]
     Active Substance: VENLAFAXINE HYDROCHLORIDE
     Indication: Product used for unknown indication
     Dosage: 225 MILLIGRAM, QD, 1 {TRIMESTER},0. - 38.3. GESTATIONAL WEEK
     Route: 064
     Dates: start: 20220522, end: 20230215
  3. DIPHTHERIA AND TETANUS TOXOIDS AND PERTUSSIS VACCINE ADSORBED NOS [Suspect]
     Active Substance: DIPHTHERIA AND TETANUS TOXOIDS AND PERTUSSIS VACCINE
     Indication: Product used for unknown indication
     Dosage: UNK,3 {TRIMESTER} 36.2. - 36.2. GESTATIONAL WEEK
     Route: 064
     Dates: start: 20230131, end: 20230131

REACTIONS (3)
  - Respiratory disorder neonatal [Recovered/Resolved]
  - Infantile vomiting [Recovered/Resolved]
  - Foetal exposure during pregnancy [Unknown]
